FAERS Safety Report 9183665 (Version 1)
Quarter: 2013Q1

REPORT INFORMATION
  Report Type: Spontaneous
  Country: US (occurrence: US)
  Receive Date: 20130322
  Receipt Date: 20130322
  Transmission Date: 20140127
  Serious: No
  Sender: FDA-Public Use
  Company Number: US-BRISTOL-MYERS SQUIBB COMPANY-16577694

PATIENT
  Age: 52 Year
  Sex: Male

DRUGS (2)
  1. ERBITUX [Suspect]
     Indication: HEPATIC CANCER
     Dates: start: 2012
  2. ERBITUX [Suspect]
     Indication: COLON CANCER
     Dates: start: 2012

REACTIONS (2)
  - Pruritus [Not Recovered/Not Resolved]
  - Acne [Recovering/Resolving]
